FAERS Safety Report 6218550-4 (Version None)
Quarter: 2009Q2

REPORT INFORMATION
  Report Type: 
  Country: None (occurrence: None)
  Receive Date: 20090608
  Receipt Date: 20090526
  Transmission Date: 20091009
  Serious: Yes (Other)
  Sender: FDA-Public Use
  Company Number: PHHY2009JP15626

PATIENT
  Sex: Male
  Weight: 52 kg

DRUGS (3)
  1. DIOVAN HCT [Suspect]
     Indication: HYPERTENSION
     Dosage: 1 DF/DAY
     Route: 048
     Dates: start: 20090414, end: 20090416
  2. EPLERENONE [Concomitant]
     Dosage: 50 MG/DAY
     Route: 048
     Dates: start: 20090414, end: 20090416
  3. MUCOSTA [Concomitant]
     Dosage: 300 MG/DAY
     Route: 048
     Dates: start: 20090414, end: 20090416

REACTIONS (12)
  - ALANINE AMINOTRANSFERASE INCREASED [None]
  - ASPARTATE AMINOTRANSFERASE INCREASED [None]
  - BLOOD ALKALINE PHOSPHATASE INCREASED [None]
  - BLOOD UREA INCREASED [None]
  - C-REACTIVE PROTEIN INCREASED [None]
  - DYSSTASIA [None]
  - GAIT DISTURBANCE [None]
  - INFECTION [None]
  - INFLAMMATION [None]
  - JOINT SWELLING [None]
  - OLIGURIA [None]
  - PAIN IN EXTREMITY [None]
